FAERS Safety Report 4663688-6 (Version None)
Quarter: 2005Q2

REPORT INFORMATION
  Report Type: 
  Country: None (occurrence: None)
  Receive Date: 20050517
  Receipt Date: 20050504
  Transmission Date: 20051028
  Serious: Yes (Other)
  Sender: FDA-Public Use
  Company Number: 2005070565

PATIENT
  Age: 56 Year
  Sex: Female
  Weight: 79.3795 kg

DRUGS (5)
  1. NEOSPORIN [Suspect]
     Indication: SKIN LACERATION
     Dosage: SMALL AMOUNT ONCE, TOPICAL
     Route: 061
     Dates: start: 20050313, end: 20050313
  2. NEOSPORIN [Suspect]
     Indication: PRURITUS
     Dosage: TOPICAL
     Route: 061
     Dates: start: 20050313
  3. CORTICOSTEROID NOS (CORTICOSTEROID NOS) [Suspect]
     Indication: RASH
     Dosage: ONCE, PARENTRAL
     Route: 051
     Dates: start: 20050314, end: 20050314
  4. PREDNISONE [Suspect]
     Indication: RASH
     Dosage: 2 TABLETS DAILY, ORAL
     Route: 048
     Dates: start: 20050315
  5. FLUOCINONIDE [Suspect]
     Indication: RASH
     Dosage: 0.5% DAILY PRN, TOPICAL
     Route: 061
     Dates: start: 20050315

REACTIONS (7)
  - BRONCHITIS ACUTE [None]
  - DRUG HYPERSENSITIVITY [None]
  - NASOPHARYNGITIS [None]
  - PLEURISY [None]
  - PRURITUS [None]
  - RASH ERYTHEMATOUS [None]
  - RESPIRATORY TRACT INFECTION [None]
